FAERS Safety Report 7627791-0 (Version None)
Quarter: 2011Q3

REPORT INFORMATION
  Report Type: 
  Country: None (occurrence: None)
  Receive Date: 20110721
  Receipt Date: 20110715
  Transmission Date: 20111222
  Serious: Yes (Hospitalization, Other)
  Sender: FDA-Public Use
  Company Number: GB-ABBOTT-11P-167-0840067-00

PATIENT
  Age: 55 Year
  Sex: Male

DRUGS (3)
  1. CLOZAPINE [Suspect]
     Indication: SCHIZOPHRENIA
     Route: 048
     Dates: start: 20100811, end: 20110318
  2. VALPROIC ACID [Suspect]
     Indication: AFFECTIVE DISORDER
     Route: 048
  3. CLOZAPINE [Suspect]
     Indication: PSYCHOTIC DISORDER
     Route: 048
     Dates: start: 20110320

REACTIONS (7)
  - IRON DEFICIENCY ANAEMIA [None]
  - FATIGUE [None]
  - DECREASED APPETITE [None]
  - APATHY [None]
  - ORTHOSTATIC HYPOTENSION [None]
  - LETHARGY [None]
  - GENERAL PHYSICAL HEALTH DETERIORATION [None]
